FAERS Safety Report 8249968-6 (Version None)
Quarter: 2012Q2

REPORT INFORMATION
  Report Type: 
  Country: None (occurrence: None)
  Receive Date: 20120402
  Receipt Date: 20120323
  Transmission Date: 20120825
  Serious: Yes (Other)
  Sender: FDA-Public Use
  Company Number: ES-JNJFOC-20120313091

PATIENT
  Age: 51 Year
  Sex: Male

DRUGS (5)
  1. STELARA [Suspect]
     Route: 058
  2. STELARA [Suspect]
     Route: 058
     Dates: start: 20091125
  3. STELARA [Suspect]
     Route: 058
     Dates: start: 20100929
  4. STELARA [Suspect]
     Indication: PSORIASIS
     Route: 058
  5. STELARA [Suspect]
     Route: 058

REACTIONS (1)
  - CATARACT [None]
